FAERS Safety Report 25582509 (Version 1)
Quarter: 2025Q3

REPORT INFORMATION
  Report Type: Spontaneous
  Country: US (occurrence: US)
  Receive Date: 20250720
  Receipt Date: 20250720
  Transmission Date: 20251021
  Serious: No
  Sender: MERCK SHARP & DOHME LLC
  Company Number: US-009507513-2308991

PATIENT
  Sex: Female
  Weight: 58.967 kg

DRUGS (8)
  1. WINREVAIR [Suspect]
     Active Substance: SOTATERCEPT-CSRK
     Dates: start: 2025
  2. WINREVAIR [Suspect]
     Active Substance: SOTATERCEPT-CSRK
  3. WINREVAIR [Suspect]
     Active Substance: SOTATERCEPT-CSRK
  4. WINREVAIR [Suspect]
     Active Substance: SOTATERCEPT-CSRK
  5. ALBUTEROL SULFATE [Concomitant]
     Active Substance: ALBUTEROL SULFATE
  6. AMBRISENTAN [Concomitant]
     Active Substance: AMBRISENTAN
  7. ONDANSETRON HYDROCHLORIDE [Concomitant]
     Active Substance: ONDANSETRON HYDROCHLORIDE
  8. ORENITRAM [Suspect]
     Active Substance: TREPROSTINIL
     Indication: Pulmonary arterial hypertension
     Route: 048
     Dates: start: 20250129

REACTIONS (3)
  - Malaise [Unknown]
  - Feeling abnormal [Unknown]
  - Pyrexia [Unknown]

NARRATIVE: CASE EVENT DATE: 20250101
